FAERS Safety Report 18776997 (Version 1)
Quarter: 2021Q1

REPORT INFORMATION
  Report Type: Spontaneous
  Country: US (occurrence: US)
  Receive Date: 20210122
  Receipt Date: 20210122
  Transmission Date: 20210419
  Serious: Yes (Hospitalization)
  Sender: FDA-Public Use
  Company Number: US-MATRIXX INITIATIVES, INC.-2105725

PATIENT
  Age: 30 Year
  Sex: Male
  Weight: 77.27 kg

DRUGS (2)
  1. MULTI VITAMINS [Concomitant]
     Active Substance: VITAMINS
  2. ZICAM INTENSE SINUS RELIEF [Suspect]
     Active Substance: OXYMETAZOLINE HYDROCHLORIDE
     Indication: SINUS CONGESTION
     Route: 045
     Dates: start: 20210107, end: 20210118

REACTIONS (10)
  - Respiratory rate increased [None]
  - Dizziness [None]
  - Muscle tightness [None]
  - Anxiety [None]
  - Panic attack [None]
  - Insomnia [None]
  - Chest discomfort [None]
  - Dyspnoea [None]
  - Paraesthesia [None]
  - Heart rate increased [None]
